FAERS Safety Report 22370948 (Version 1)
Quarter: 2023Q2

REPORT INFORMATION
  Report Type: Spontaneous
  Country: ES (occurrence: ES)
  Receive Date: 20230526
  Receipt Date: 20230526
  Transmission Date: 20230721
  Serious: Yes (Hospitalization)
  Sender: FDA-Public Use
  Company Number: None

PATIENT
  Age: 15 Year
  Sex: Male

DRUGS (2)
  1. MESALAMINE [Suspect]
     Active Substance: MESALAMINE
     Indication: Proctitis ulcerative
     Dosage: 500 MILLIGRAM, Q12H
     Route: 048
     Dates: start: 20230119, end: 20230126
  2. Salofalk [Concomitant]
     Indication: Proctitis ulcerative
     Dosage: 3 GRAM, QD
     Route: 048
     Dates: start: 20221026, end: 20230123

REACTIONS (1)
  - Pancreatitis [Recovered/Resolved]

NARRATIVE: CASE EVENT DATE: 20230119
